FAERS Safety Report 5259359-8 (Version None)
Quarter: 2007Q1

REPORT INFORMATION
  Report Type: 
  Country: None (occurrence: None)
  Receive Date: 20070305
  Receipt Date: 20070226
  Transmission Date: 20070707
  Serious: Yes (Life-Threatening, Other)
  Sender: FDA-Public Use
  Company Number: GXKR2007DE01924

PATIENT
  Age: 59 Year
  Sex: Female
  Weight: 73 kg

DRUGS (5)
  1. ATEHEXAL (NGX)  (ATENOLOL) FILM-COATED TABLET, 50MG [Suspect]
     Indication: HYPERTENSION
     Dosage: ORAL
     Route: 048
     Dates: start: 20061130, end: 20061206
  2. PARACETAMOL COMP. ^STADA^ (CODEINE PHOSPHATE HEMIHYDRATE, PARACETAMOL) [Suspect]
     Indication: BACK PAIN
     Dosage: ORAL
     Route: 048
  3. NOVAMINSULFON-RATIOPHARM METAMIZOLE SODIUM) [Suspect]
     Indication: BACK PAIN
     Dosage: 25 GTT, BID, ORAL
     Route: 048
  4. CAPTO COMP ^CT-ARZNEIMITTEL (CAPTOPRIL, HYDROCHLOROTHIAZIDE 50/25MG [Suspect]
     Indication: HYPERTENSION
     Dosage: ORAL
     Route: 048
  5. CIMICIFUGA (CIMICIFUGA RACEMOSA ROOT) [Suspect]
     Dosage: ORAL
     Route: 048

REACTIONS (3)
  - HEPATIC NECROSIS [None]
  - HEPATITIS [None]
  - HEPATOCELLULAR DAMAGE [None]
